FAERS Safety Report 23635281 (Version 1)
Quarter: 2024Q1

REPORT INFORMATION
  Report Type: Spontaneous
  Country: PL (occurrence: PL)
  Receive Date: 20240315
  Receipt Date: 20240315
  Transmission Date: 20240410
  Serious: Yes (Other)
  Sender: FDA-Public Use
  Company Number: None

PATIENT
  Age: 81 Year
  Sex: Male

DRUGS (2)
  1. RIFAMPIN [Suspect]
     Active Substance: RIFAMPIN
     Dosage: 300 MG, BID (THE DRUG WAS ADMINISTERED AGAIN AFTER 2 DAYS)
     Route: 048
     Dates: start: 20200817, end: 20200818
  2. VANCOMYCIN [Suspect]
     Active Substance: VANCOMYCIN
     Indication: Cerebrovascular disorder
     Dosage: 2 G , 5ID
     Route: 042
     Dates: start: 20200713, end: 20200818

REACTIONS (3)
  - Neutropenia [Recovered/Resolved]
  - Anaemia [Recovered/Resolved]
  - Skin reaction [Recovered/Resolved]
